FAERS Safety Report 25359338 (Version 2)
Quarter: 2025Q2

REPORT INFORMATION
  Report Type: Spontaneous
  Country: IT (occurrence: IT)
  Receive Date: 20250526
  Receipt Date: 20250603
  Transmission Date: 20250717
  Serious: Yes (Life-Threatening, Hospitalization)
  Sender: TEVA
  Company Number: IT-TEVA-VS-3334697

PATIENT
  Age: 5 Year
  Sex: Male

DRUGS (5)
  1. BUSULFAN [Suspect]
     Active Substance: BUSULFAN
     Indication: Bone marrow conditioning regimen
     Route: 065
  2. MILRINONE [Suspect]
     Active Substance: MILRINONE
     Indication: Pulmonary arterial hypertension
     Route: 065
  3. FUROSEMIDE [Suspect]
     Active Substance: FUROSEMIDE
     Indication: Pulmonary arterial hypertension
     Route: 065
  4. MELPHALAN [Concomitant]
     Active Substance: MELPHALAN
     Indication: Bone marrow conditioning regimen
     Route: 065
  5. SILDENAFIL [Suspect]
     Active Substance: SILDENAFIL
     Indication: Pulmonary arterial hypertension
     Route: 065

REACTIONS (7)
  - Pulmonary arterial hypertension [Recovering/Resolving]
  - Tricuspid valve incompetence [Recovered/Resolved]
  - Drug ineffective [Unknown]
  - Cardiomegaly [Recovered/Resolved]
  - Right ventricular dysfunction [Recovered/Resolved]
  - Cardiogenic shock [Recovering/Resolving]
  - Cardiac failure chronic [Recovering/Resolving]
